FAERS Safety Report 12081049 (Version 1)
Quarter: 2016Q1

REPORT INFORMATION
  Report Type: Spontaneous
  Country: CA (occurrence: CA)
  Receive Date: 20160216
  Receipt Date: 20160216
  Transmission Date: 20160526
  Serious: Yes (Other)
  Sender: FDA-Public Use
  Company Number: CA-PFIZER INC-2016075551

PATIENT

DRUGS (2)
  1. VYVANSE [Suspect]
     Active Substance: LISDEXAMFETAMINE DIMESYLATE
     Dosage: 30 MG, 1X/DAY
     Route: 065
  2. ACCURETIC [Suspect]
     Active Substance: HYDROCHLOROTHIAZIDE\QUINAPRIL HYDROCHLORIDE
     Indication: HYPERTENSION
     Route: 065

REACTIONS (7)
  - Loss of consciousness [Unknown]
  - Blood pressure decreased [Unknown]
  - Cold sweat [Unknown]
  - Fracture [Unknown]
  - Hyperhidrosis [Unknown]
  - Malaise [Unknown]
  - Dizziness [Unknown]
